FAERS Safety Report 5781853-1 (Version None)
Quarter: 2008Q2

REPORT INFORMATION
  Report Type: 
  Country: None (occurrence: None)
  Receive Date: 20080623
  Receipt Date: 20080311
  Transmission Date: 20081010
  Serious: No
  Sender: FDA-Public Use
  Company Number: US-ASTRAZENECA-2008UW04904

PATIENT
  Sex: Male

DRUGS (2)
  1. RHINOCORT [Suspect]
     Indication: SINUSITIS
     Route: 045
  2. AUGMENTIN '125' [Concomitant]
     Indication: SINUSITIS

REACTIONS (2)
  - AGEUSIA [None]
  - ANOSMIA [None]
